FAERS Safety Report 10045989 (Version 4)
Quarter: 2014Q2

REPORT INFORMATION
  Report Type: Spontaneous
  Country: US (occurrence: US)
  Receive Date: 20140330
  Receipt Date: 20140512
  Transmission Date: 20141212
  Serious: Yes (Hospitalization, Other)
  Sender: FDA-Public Use
  Company Number: US-009507513-1403USA012934

PATIENT
  Age: 55 Year
  Sex: Female
  Weight: 96.6 kg

DRUGS (3)
  1. INTEGRILIN [Suspect]
     Indication: MYOCARDIAL INFARCTION
     Dosage: DOSE 180 MICROGRAM PER KILOGRAM, UNK
     Route: 042
     Dates: start: 201403, end: 20140326
  2. INTEGRILIN [Suspect]
     Indication: CARDIAC DISORDER
     Dosage: 100 ML, ONCE
     Route: 042
     Dates: start: 201403, end: 20140326
  3. INTEGRILIN [Suspect]
     Dosage: 100 ML, ONCE
     Route: 042
     Dates: start: 201403, end: 20140326

REACTIONS (6)
  - Acute myocardial infarction [Recovered/Resolved]
  - Nausea [Recovered/Resolved]
  - Swelling face [Recovered/Resolved]
  - Peripheral swelling [Recovered/Resolved]
  - Rash [Unknown]
  - Product quality issue [Unknown]
